FAERS Safety Report 18637769 (Version 1)
Quarter: 2020Q4

REPORT INFORMATION
  Report Type: Spontaneous
  Country: IT (occurrence: IT)
  Receive Date: 20201218
  Receipt Date: 20201218
  Transmission Date: 20210114
  Serious: Yes (Other)
  Sender: FDA-Public Use
  Company Number: IT-ASTRAZENECA-2020SF65988

PATIENT
  Age: 57 Year
  Sex: Male

DRUGS (5)
  1. OPTALIDON [CAFFEINE/PROPYPHENAZONE] [Suspect]
     Active Substance: CAFFEINE\PROPYPHENAZONE
     Indication: DRUG ABUSE
     Dosage: 8.0DF ONCE/SINGLE ADMINISTRATION
     Route: 048
     Dates: start: 20200902, end: 20200902
  2. HALDOL [Concomitant]
     Active Substance: HALOPERIDOL
     Indication: SCHIZOPHRENIA
     Route: 048
  3. QUETIAPINE. [Suspect]
     Active Substance: QUETIAPINE
     Indication: SCHIZOPHRENIA
     Dosage: 1600.0MG ONCE/SINGLE ADMINISTRATION
     Route: 048
     Dates: start: 20200902, end: 20200902
  4. ARIPIPRAZOLE. [Concomitant]
     Active Substance: ARIPIPRAZOLE
     Indication: SCHIZOPHRENIA
     Route: 048
  5. ANSIOLIN [Concomitant]
     Active Substance: DIAZEPAM
     Indication: SCHIZOPHRENIA
     Route: 048

REACTIONS (4)
  - Bradykinesia [Recovering/Resolving]
  - Bradyphrenia [Recovering/Resolving]
  - Drug abuse [Recovering/Resolving]
  - Intentional self-injury [Recovering/Resolving]

NARRATIVE: CASE EVENT DATE: 20200902
